FAERS Safety Report 13450551 (Version 2)
Quarter: 2017Q3

REPORT INFORMATION
  Report Type: Report from Study
  Country: None (occurrence: BR)
  Receive Date: 20170418
  Receipt Date: 20170923
  Transmission Date: 20171127
  Serious: Yes (Hospitalization, Other)
  Sender: FDA-Public Use
  Company Number: BR-ABBVIE-17K-020-1943936-00

PATIENT
  Age: 31 Year
  Sex: Female
  Weight: 87 kg

DRUGS (4)
  1. HUMIRA [Suspect]
     Active Substance: ADALIMUMAB
     Indication: CROHN^S DISEASE
     Dosage: LOADING DOSE WEEK 0
     Route: 058
     Dates: start: 20150127, end: 20150127
  2. HUMIRA [Suspect]
     Active Substance: ADALIMUMAB
     Route: 058
     Dates: start: 20160621
  3. HUMIRA [Suspect]
     Active Substance: ADALIMUMAB
     Route: 058
     Dates: end: 20150414
  4. HUMIRA [Suspect]
     Active Substance: ADALIMUMAB
     Dosage: LOADING DOSE WEEK 2
     Route: 058
     Dates: start: 20150210, end: 20150210

REACTIONS (15)
  - Disseminated tuberculosis [Recovered/Resolved]
  - Colectomy [Unknown]
  - Exposure during pregnancy [Unknown]
  - Menorrhagia [Not Recovered/Not Resolved]
  - Weight increased [Recovered/Resolved]
  - Pulmonary tuberculosis [Recovered/Resolved]
  - Muscle spasms [Unknown]
  - Foetal death [Unknown]
  - Pneumonia [Recovered/Resolved]
  - Weight increased [Not Recovered/Not Resolved]
  - Post abortion infection [Recovered/Resolved]
  - Abortion spontaneous [Recovered/Resolved]
  - Post abortion haemorrhage [Recovered/Resolved]
  - Pain [Unknown]
  - Renal tuberculosis [Recovered/Resolved]

NARRATIVE: CASE EVENT DATE: 2015
